FAERS Safety Report 8272734-2 (Version None)
Quarter: 2012Q2

REPORT INFORMATION
  Report Type: 
  Country: None (occurrence: None)
  Receive Date: 20120411
  Receipt Date: 20120321
  Transmission Date: 20120825
  Serious: Yes (Other)
  Sender: FDA-Public Use
  Company Number: JP-BAXTER-2011BH018179

PATIENT
  Sex: Male
  Weight: 41 kg

DRUGS (7)
  1. FEIBA [Suspect]
     Route: 042
  2. REBAMIPIDE [Concomitant]
     Indication: GASTRITIS PROPHYLAXIS
     Route: 048
     Dates: start: 20100421
  3. FEIBA [Suspect]
     Dosage: 3804 UNITS
     Route: 042
     Dates: start: 20110524, end: 20110524
  4. LOXOPROFEN SODIUM [Concomitant]
     Route: 048
     Dates: start: 20100421
  5. KETOPROFEN [Concomitant]
     Route: 062
     Dates: start: 20100421
  6. ZOLPIDEM TARTRATE [Concomitant]
     Indication: INSOMNIA
     Route: 048
     Dates: start: 20090901
  7. URSODIOL [Concomitant]
     Route: 048
     Dates: start: 20101009

REACTIONS (1)
  - HEPATITIS B SURFACE ANTIBODY POSITIVE [None]
